FAERS Safety Report 9299820 (Version 5)
Quarter: 2013Q4

REPORT INFORMATION
  Report Type: Spontaneous
  Country: US (occurrence: None)
  Receive Date: 20121115
  Receipt Date: 20131025
  Transmission Date: 20140711
  Serious: Yes (Hospitalization, Other)
  Sender: FDA-Public Use
  Company Number: ADR-2011-10950

PATIENT
  Sex: Female

DRUGS (8)
  1. LIORESAL INTRATHECAL [Suspect]
     Indication: MUSCLE SPASTICITY
  2. COMPAZINE [Concomitant]
  3. PHENOBARBITAL [Suspect]
  4. FENTANYL [Concomitant]
  5. OXYCODONE AS NEEDED [Concomitant]
  6. VALIUM [Concomitant]
  7. ENSURE 5XDAILY [Concomitant]
  8. ZOFRAN [Concomitant]

REACTIONS (13)
  - Nausea [None]
  - Weight decreased [None]
  - Malaise [None]
  - Drug ineffective [None]
  - Pain [None]
  - Hypophagia [None]
  - Depression [None]
  - Insomnia [None]
  - Decreased appetite [None]
  - Stiff person syndrome [None]
  - Disease progression [None]
  - Malaise [None]
  - Weight decreased [None]
